FAERS Safety Report 11984909 (Version 2)
Quarter: 2016Q1

REPORT INFORMATION
  Report Type: Spontaneous
  Country: US (occurrence: US)
  Receive Date: 20160201
  Receipt Date: 20160322
  Transmission Date: 20160526
  Serious: No
  Sender: FDA-Public Use
  Company Number: US-LEO PHARMA-239840

PATIENT
  Age: 57 Year
  Sex: Female

DRUGS (2)
  1. SYNTHROID [Concomitant]
     Active Substance: LEVOTHYROXINE SODIUM
     Indication: PRODUCT USED FOR UNKNOWN INDICATION
  2. PICATO [Suspect]
     Active Substance: INGENOL MEBUTATE
     Indication: ACTINIC KERATOSIS
     Dosage: 2 TUBES A DAY
     Route: 061
     Dates: start: 20160122, end: 20160124

REACTIONS (9)
  - Drug administered at inappropriate site [Unknown]
  - Application site discolouration [Recovered/Resolved]
  - Application site papules [Recovered/Resolved]
  - Application site ulcer [Recovered/Resolved]
  - Medication error [Unknown]
  - Application site haemorrhage [Recovered/Resolved]
  - Drug administration error [Unknown]
  - Application site swelling [Recovered/Resolved]
  - Application site erythema [Recovered/Resolved]

NARRATIVE: CASE EVENT DATE: 20160122
